FAERS Safety Report 8921405 (Version 2)
Quarter: 2013Q3

REPORT INFORMATION
  Report Type: Spontaneous
  Country: US (occurrence: US)
  Receive Date: 20121121
  Receipt Date: 20130716
  Transmission Date: 20140515
  Serious: Yes (Hospitalization, Disabling, Other)
  Sender: FDA-Public Use
  Company Number: US-009507513-1211USA008131

PATIENT
  Sex: Female

DRUGS (3)
  1. FOSAMAX [Suspect]
     Indication: OSTEOPOROSIS
     Dosage: 70 MG, UNK
     Route: 048
     Dates: end: 2007
  2. VITAMINS (UNSPECIFIED) [Concomitant]
     Dosage: 1 QD
     Dates: start: 1980
  3. RECLAST [Concomitant]
     Indication: OSTEOPOROSIS

REACTIONS (14)
  - Femur fracture [Unknown]
  - Intramedullary rod insertion [Unknown]
  - Osteoporosis [Unknown]
  - Low turnover osteopathy [Unknown]
  - Multiple fractures [Unknown]
  - Femur fracture [Unknown]
  - Lumbar vertebral fracture [Unknown]
  - Spinal fusion surgery [Unknown]
  - Femoral neck fracture [Unknown]
  - Internal fixation of fracture [Unknown]
  - Foot fracture [Unknown]
  - Impaired healing [Unknown]
  - Fall [Unknown]
  - Gastrooesophageal reflux disease [Unknown]
